FAERS Safety Report 7053529-4 (Version None)
Quarter: 2010Q4

REPORT INFORMATION
  Report Type: 
  Country: None (occurrence: None)
  Receive Date: 20101020
  Receipt Date: 20101013
  Transmission Date: 20110411
  Serious: No
  Sender: FDA-Public Use
  Company Number: US-PFIZER INC-2010131000

PATIENT
  Sex: Female
  Weight: 120.64 kg

DRUGS (14)
  1. DETROL LA [Suspect]
     Indication: MICTURITION URGENCY
     Dosage: 4 MG, UNK
     Route: 048
     Dates: start: 20060101
  2. DETROL LA [Suspect]
     Dosage: 4 MG, UNK
     Route: 048
     Dates: start: 20100901
  3. MONTELUKAST SODIUM [Concomitant]
     Indication: ASTHMA
     Dosage: 10 MG, 1X/DAY
     Route: 048
  4. EFFEXOR [Concomitant]
     Indication: DEPRESSION
     Dosage: 225 MG, 1X/DAY
     Route: 048
  5. PROTONIX [Concomitant]
     Indication: GASTROOESOPHAGEAL REFLUX DISEASE
     Dosage: 40 MG, UNK
     Route: 048
  6. ATENOLOL [Concomitant]
     Indication: HYPERTENSION
     Dosage: 50 MG, 2X/DAY
  7. LIPITOR [Concomitant]
     Dosage: 40 MG, 1X/DAY
     Route: 048
  8. SEROQUEL [Concomitant]
     Indication: SLEEP DISORDER
     Dosage: 25 MG, 1X/DAY
     Route: 048
  9. VALSARTAN [Concomitant]
     Indication: HYPERTENSION
     Dosage: 320 MG, 1X/DAY
     Route: 048
  10. GLIPIZIDE [Concomitant]
     Indication: DIABETES MELLITUS
     Dosage: 5 MG, 2X/DAY
     Route: 048
  11. ACETYLSALICYLIC ACID [Concomitant]
     Indication: CARDIAC DISORDER
     Dosage: UNK
     Route: 048
  12. NORCO [Concomitant]
     Indication: PAIN
     Dosage: 10MG/325MG, 1X/DAY
     Route: 048
  13. SITAGLIPTIN [Concomitant]
     Indication: DIABETES MELLITUS
     Dosage: 50 MG, 1X/DAY
     Route: 048
  14. LANTUS [Concomitant]
     Indication: DIABETES MELLITUS
     Dosage: 25 MG, 1X/DAY

REACTIONS (2)
  - DRUG INEFFECTIVE [None]
  - DRY MOUTH [None]
